FAERS Safety Report 23286968 (Version 1)
Quarter: 2023Q4

REPORT INFORMATION
  Report Type: Spontaneous
  Country: CA (occurrence: CA)
  Receive Date: 20231212
  Receipt Date: 20231212
  Transmission Date: 20240110
  Serious: Yes (Hospitalization)
  Sender: FDA-Public Use
  Company Number: CA-BAXTER-2022BAX022212

PATIENT
  Age: 70 Year
  Sex: Male

DRUGS (6)
  1. DOXORUBICIN [Suspect]
     Active Substance: DOXORUBICIN
     Indication: Neoplasm malignant
     Dosage: UNK, DOSAGE FORM: NOT SPECIFIED
     Route: 065
  2. DOXORUBICIN [Suspect]
     Active Substance: DOXORUBICIN
     Indication: Neuroectodermal neoplasm
  3. DOXORUBICIN [Suspect]
     Active Substance: DOXORUBICIN
     Indication: Gastrointestinal carcinoma
  4. LARTRUVO [Suspect]
     Active Substance: OLARATUMAB
     Indication: Neoplasm malignant
     Dosage: UNK, DOSAGE FORM: SOLUTION
     Route: 065
  5. LARTRUVO [Suspect]
     Active Substance: OLARATUMAB
     Indication: Neuroectodermal neoplasm
  6. LARTRUVO [Suspect]
     Active Substance: OLARATUMAB
     Indication: Gastrointestinal carcinoma

REACTIONS (1)
  - Drug ineffective [Unknown]
